FAERS Safety Report 11555527 (Version 1)
Quarter: 2015Q3

REPORT INFORMATION
  Report Type: Spontaneous
  Country: US (occurrence: US)
  Receive Date: 20150925
  Receipt Date: 20150925
  Transmission Date: 20151125
  Serious: Yes (Other)
  Sender: FDA-Public Use
  Company Number: US-PERRIGO-15US009573

PATIENT
  Age: 42 Year
  Sex: Female

DRUGS (2)
  1. CIMETIDINE  200 MG 022 [Suspect]
     Active Substance: CIMETIDINE
     Indication: DRUG EFFECT INCREASED
     Dosage: UP TO 6 TABLETS QD
     Route: 048
  2. GOOD NEIGHBOR PHARMACY ANTI DIARRHEAL [Suspect]
     Active Substance: LOPERAMIDE HYDROCHLORIDE
     Indication: PAIN
     Dosage: 120-140 MG QD
     Route: 048

REACTIONS (9)
  - Drug abuse [Unknown]
  - Anxiety [Recovering/Resolving]
  - Mydriasis [Unknown]
  - Drug withdrawal syndrome [Unknown]
  - Restlessness [Unknown]
  - Overdose [Unknown]
  - Vomiting [Unknown]
  - Diarrhoea [Unknown]
  - Piloerection [Unknown]
